FAERS Safety Report 20476388 (Version 1)
Quarter: 2022Q1

REPORT INFORMATION
  Report Type: Spontaneous
  Country: CN (occurrence: CN)
  Receive Date: 20220215
  Receipt Date: 20220215
  Transmission Date: 20220423
  Serious: Yes (Other)
  Sender: FDA-Public Use
  Company Number: CN-PFIZER INC-202200197788

PATIENT
  Age: 55 Year
  Sex: Female

DRUGS (1)
  1. CRIZOTINIB [Suspect]
     Active Substance: CRIZOTINIB
     Indication: Gallbladder cancer metastatic
     Dosage: 250 MG, DAILY, INITIAL DOSE
     Dates: start: 202003

REACTIONS (5)
  - Vomiting [Unknown]
  - Nausea [Unknown]
  - Jaundice [Unknown]
  - Blood bilirubin increased [Unknown]
  - Off label use [Unknown]
